FAERS Safety Report 10154857 (Version 1)
Quarter: 2014Q2

REPORT INFORMATION
  Report Type: Spontaneous
  Country: US (occurrence: US)
  Receive Date: 20140506
  Receipt Date: 20140506
  Transmission Date: 20141212
  Serious: No
  Sender: FDA-Public Use
  Company Number: US-PFIZER INC-2014123473

PATIENT
  Sex: Female
  Weight: 70.3 kg

DRUGS (3)
  1. PRISTIQ [Suspect]
     Indication: DEPRESSION
     Dosage: 50 MG, DAILY
     Route: 048
  2. MOBIC [Concomitant]
     Indication: BACK DISORDER
     Dosage: 15 MG, DAILY
     Dates: start: 2014
  3. SKELAXIN [Concomitant]
     Indication: MUSCLE RELAXANT THERAPY
     Dosage: 800 MG, AS NEEDED

REACTIONS (1)
  - Irritable bowel syndrome [Unknown]
